FAERS Safety Report 18996251 (Version 1)
Quarter: 2021Q1

REPORT INFORMATION
  Report Type: Spontaneous
  Country: GB (occurrence: GB)
  Receive Date: 20210311
  Receipt Date: 20210311
  Transmission Date: 20210420
  Serious: Yes (Other)
  Sender: FDA-Public Use
  Company Number: GB-TEVA-2021-GB-1886493

PATIENT
  Age: 59 Year
  Sex: Female
  Weight: 68.94 kg

DRUGS (7)
  1. OVESTIN [Concomitant]
     Active Substance: ESTRIOL
  2. PARACETAMOL [Concomitant]
     Active Substance: ACETAMINOPHEN
  3. FEMOSTON [Concomitant]
     Active Substance: DYDROGESTERONE\ESTRADIOL
  4. IBUPROFEN. [Concomitant]
     Active Substance: IBUPROFEN
  5. NITROFURANTOIN. [Concomitant]
     Active Substance: NITROFURANTOIN
  6. VAGIFEM [Concomitant]
     Active Substance: ESTRADIOL
  7. TRIMETHOPRIM. [Suspect]
     Active Substance: TRIMETHOPRIM
     Indication: URINARY TRACT INFECTION
     Dosage: 400 MILLIGRAM DAILY;
     Route: 048
     Dates: start: 20210215, end: 20210218

REACTIONS (3)
  - Muscle spasms [Not Recovered/Not Resolved]
  - Headache [Recovering/Resolving]
  - Nausea [Recovering/Resolving]

NARRATIVE: CASE EVENT DATE: 20210216
